FAERS Safety Report 9385640 (Version 1)
Quarter: 2013Q3

REPORT INFORMATION
  Report Type: Spontaneous
  Country: GB (occurrence: None)
  Receive Date: 20130701
  Receipt Date: 20130701
  Transmission Date: 20140515
  Serious: No
  Sender: FDA-Public Use
  Company Number: 2013GR_BP003212

PATIENT
  Age: 32 Year
  Sex: Female

DRUGS (2)
  1. FINASTERIDE (FINASTERIDE) [Suspect]
     Indication: POLYCYSTIC OVARIES
     Dosage: STOPPED?
  2. FINASTERIDE (FINASTERIDE) [Suspect]
     Dosage: STOPPED?

REACTIONS (4)
  - Breast cancer [None]
  - Off label use [None]
  - Off label use [None]
  - Off label use [None]
